FAERS Safety Report 5302342-4 (Version None)
Quarter: 2007Q1

REPORT INFORMATION
  Report Type: 
  Country: None (occurrence: None)
  Receive Date: 20070201
  Receipt Date: 20061211
  Transmission Date: 20070707
  Serious: No
  Sender: FDA-Public Use
  Company Number: 2006PV026742

PATIENT
  Age: 58 Year
  Sex: Male

DRUGS (1)
  1. BYETTA [Suspect]
     Indication: DRUG USE FOR UNKNOWN INDICATION
     Dosage: 10 MCG;BID;SC
     Route: 058
     Dates: start: 20061101

REACTIONS (1)
  - WEIGHT DECREASED [None]
